FAERS Safety Report 16049310 (Version 1)
Quarter: 2019Q1

REPORT INFORMATION
  Report Type: Spontaneous
  Country: US (occurrence: US)
  Receive Date: 20190307
  Receipt Date: 20190307
  Transmission Date: 20190418
  Serious: No
  Sender: FDA-Public Use
  Company Number: US-TEVA-2019-US-1009902

PATIENT
  Sex: Female

DRUGS (1)
  1. ESTROPIPATE TABLET [Suspect]
     Active Substance: ESTROPIPATE
     Route: 065

REACTIONS (3)
  - Therapy change [Unknown]
  - Drug ineffective [Unknown]
  - Product substitution issue [None]
